FAERS Safety Report 9059959 (Version 3)
Quarter: 2014Q4

REPORT INFORMATION
  Report Type: Spontaneous
  Country: US (occurrence: US)
  Receive Date: 20130212
  Receipt Date: 20141112
  Transmission Date: 20150529
  Serious: Yes (Hospitalization)
  Sender: FDA-Public Use
  Company Number: US-BAYER-2013-015840

PATIENT
  Age: 31 Year
  Sex: Female
  Weight: 52.61 kg

DRUGS (6)
  1. MOMETASONE [Concomitant]
     Active Substance: MOMETASONE
     Indication: MULTIPLE ALLERGIES
     Dosage: 50 MCG.ACT NA SUSP
     Route: 045
     Dates: start: 201005
  2. CEFATRIZINE [Concomitant]
     Active Substance: CEFATRIZINE
     Indication: MULTIPLE ALLERGIES
     Dosage: 10 MG, QD
     Route: 048
     Dates: start: 201005
  3. OCELLA [Suspect]
     Active Substance: DROSPIRENONE\ETHINYL ESTRADIOL
     Indication: CONTRACEPTION
     Dosage: UNK
     Dates: start: 200906, end: 20100526
  4. OLOPATADINE [Concomitant]
     Active Substance: OLOPATADINE
     Indication: MULTIPLE ALLERGIES
     Dosage: 1 GTT EACH EYE 2 X A DAY
     Route: 047
     Dates: start: 201005
  5. YAZ [Suspect]
     Active Substance: DROSPIRENONE\ETHINYL ESTRADIOL
     Indication: CONTRACEPTION
     Dosage: UNK
     Dates: start: 200906, end: 20100526
  6. XANAX [Concomitant]
     Active Substance: ALPRAZOLAM
     Indication: ANXIETY
     Dosage: 025 MG HALF TAB, PRN
     Route: 048
     Dates: start: 201005

REACTIONS (9)
  - Nephrolithiasis [None]
  - Pain [None]
  - Transient ischaemic attack [None]
  - Mental disorder [None]
  - Injury [None]
  - Emotional distress [None]
  - General physical health deterioration [None]
  - Anxiety [None]
  - Cerebrovascular accident [None]

NARRATIVE: CASE EVENT DATE: 2009
